FAERS Safety Report 7067533-3 (Version None)
Quarter: 2010Q4

REPORT INFORMATION
  Report Type: 
  Country: None (occurrence: None)
  Receive Date: 20101020
  Receipt Date: 20101014
  Transmission Date: 20110411
  Serious: Yes (Death, Other)
  Sender: FDA-Public Use
  Company Number: 2010US003819

PATIENT
  Age: 52 Year
  Sex: Female

DRUGS (3)
  1. PROGRAF [Suspect]
     Indication: LIVER TRANSPLANT
     Dates: start: 20090217, end: 20100406
  2. DAPSONE [Concomitant]
  3. ULTRAM [Concomitant]

REACTIONS (4)
  - ASCITES [None]
  - HEPATITIS C [None]
  - PLEURAL EFFUSION [None]
  - SEPSIS [None]
